FAERS Safety Report 8376299-6 (Version None)
Quarter: 2012Q2

REPORT INFORMATION
  Report Type: 
  Country: None (occurrence: None)
  Receive Date: 20120518
  Receipt Date: 20120507
  Transmission Date: 20120825
  Serious: Yes (Hospitalization, Other)
  Sender: FDA-Public Use
  Company Number: IMP_05887_2012

PATIENT
  Age: 83 Year
  Sex: Male

DRUGS (5)
  1. DIPYRIDAMOL [Concomitant]
  2. ASPIRIN [Concomitant]
  3. OMEPRAZOLE [Suspect]
     Indication: PRODUCT USED FOR UNKNOWN INDICATION
     Dosage: (DF)
  4. ATORVASTATIN CALCIUM [Concomitant]
  5. ISOSORBIDE MONONITRATE [Concomitant]

REACTIONS (3)
  - RENAL FAILURE [None]
  - TUBULOINTERSTITIAL NEPHRITIS [None]
  - ANTINEUTROPHIL CYTOPLASMIC ANTIBODY POSITIVE [None]
